FAERS Safety Report 14062338 (Version 1)
Quarter: 2017Q4

REPORT INFORMATION
  Report Type: Spontaneous
  Country: US (occurrence: US)
  Receive Date: 20171009
  Receipt Date: 20171009
  Transmission Date: 20180321
  Serious: No
  Sender: FDA-Public Use
  Company Number: US-PFIZER INC-2017430832

PATIENT
  Age: 25 Year
  Sex: Female
  Weight: 99.79 kg

DRUGS (4)
  1. DEPO-PROVERA [Suspect]
     Active Substance: MEDROXYPROGESTERONE ACETATE
     Indication: CONTRACEPTION
     Dosage: UNK (2 WEEKS AFTER HER MENSTRUAL CYCLE)
     Dates: start: 201703
  2. DEPO-PROVERA [Suspect]
     Active Substance: MEDROXYPROGESTERONE ACETATE
     Dosage: UNK (END OF APR2017)
     Dates: start: 201704
  3. OXYCODONE [Concomitant]
     Active Substance: OXYCODONE
     Indication: WISDOM TEETH REMOVAL
     Dosage: UNK
     Dates: start: 201706
  4. DEPO-PROVERA [Suspect]
     Active Substance: MEDROXYPROGESTERONE ACETATE
     Dosage: UNK
     Dates: start: 20170724

REACTIONS (2)
  - Inappropriate schedule of drug administration [Unknown]
  - Menstruation irregular [Not Recovered/Not Resolved]

NARRATIVE: CASE EVENT DATE: 20170416
